FAERS Safety Report 8355465-X (Version None)
Quarter: 2012Q2

REPORT INFORMATION
  Report Type: 
  Country: None (occurrence: None)
  Receive Date: 20120512
  Receipt Date: 20120501
  Transmission Date: 20120825
  Serious: Yes (Hospitalization)
  Sender: FDA-Public Use
  Company Number: US-ELI_LILLY_AND_COMPANY-US201204001183

PATIENT
  Sex: Female

DRUGS (3)
  1. FORTEO [Suspect]
     Dosage: 20 UG, QD
     Route: 065
     Dates: end: 20120327
  2. COUMADIN [Concomitant]
     Dosage: UNK, UNKNOWN
     Route: 065
  3. FORTEO [Suspect]
     Dosage: 20 UG, QD
     Route: 065
     Dates: start: 20120404

REACTIONS (8)
  - DIARRHOEA [None]
  - DEHYDRATION [None]
  - PROTHROMBIN LEVEL ABNORMAL [None]
  - VOMITING [None]
  - LEUKOCYTOSIS [None]
  - ANTICOAGULATION DRUG LEVEL [None]
  - NAUSEA [None]
  - ULCER [None]
